FAERS Safety Report 9295285 (Version 2)
Quarter: 2013Q2

REPORT INFORMATION
  Report Type: Report from Study
  Country: IT (occurrence: IT)
  Receive Date: 20130517
  Receipt Date: 20130531
  Transmission Date: 20140414
  Serious: Yes (Hospitalization)
  Sender: FDA-Public Use
  Company Number: IT-ROCHE-1223477

PATIENT
  Age: 72 Year
  Sex: Female
  Weight: 80 kg

DRUGS (6)
  1. BEVACIZUMAB [Suspect]
     Indication: COLON CANCER
     Dosage: LAST DOSE PRIOR TO SAE WAS ON 19/JAN/2012
     Route: 042
     Dates: start: 20111111, end: 20120119
  2. BEVACIZUMAB [Suspect]
     Route: 042
     Dates: start: 20120320
  3. CAPECITABINE [Suspect]
     Indication: COLON CANCER
     Dosage: LAST DOSE PRIOR TO SAE WAS ON 25/JAN/2012.
     Route: 048
     Dates: start: 20111111, end: 20120125
  4. CAPECITABINE [Suspect]
     Route: 048
     Dates: start: 20120320
  5. OXALIPLATIN [Suspect]
     Indication: COLON CANCER
     Dosage: LAST DOSE PRIOR TO SAE WAS ON 17/JAN/2012.
     Route: 042
     Dates: start: 20111111, end: 20120119
  6. OXALIPLATIN [Suspect]
     Route: 042
     Dates: start: 20130320

REACTIONS (3)
  - Pyrexia [Recovered/Resolved]
  - Dehydration [Recovered/Resolved]
  - Diabetes mellitus inadequate control [Recovered/Resolved]
